FAERS Safety Report 10945021 (Version 1)
Quarter: 2015Q1

REPORT INFORMATION
  Report Type: Spontaneous
  Country: ES (occurrence: ES)
  Receive Date: 20150323
  Receipt Date: 20150323
  Transmission Date: 20150721
  Serious: Yes (Other)
  Sender: FDA-Public Use
  Company Number: ES-009507513-1502ESP002359

PATIENT
  Age: 32 Year
  Sex: Female

DRUGS (3)
  1. NUVARING [Suspect]
     Active Substance: ETHINYL ESTRADIOL\ETONOGESTREL
     Dosage: UNK (ETONOGESTREL 0.120 MG/ETHINYL ESTRADIOL 0.015 MG)
     Route: 067
     Dates: start: 201405
  2. NUVARING [Suspect]
     Active Substance: ETHINYL ESTRADIOL\ETONOGESTREL
     Dosage: UNK (ETONOGESTREL 0.120 MG/ETHINYL ESTRADIOL 0.015 MG)
     Route: 067
     Dates: start: 20141130, end: 20141221
  3. NUVARING [Suspect]
     Active Substance: ETHINYL ESTRADIOL\ETONOGESTREL
     Dosage: UNK (ETONOGESTREL 0.120 MG/ETHINYL ESTRADIOL 0.015 MG)
     Route: 067
     Dates: start: 20141228, end: 20150118

REACTIONS (2)
  - Unintended pregnancy [Recovered/Resolved]
  - Abortion induced [Unknown]

NARRATIVE: CASE EVENT DATE: 2015
